FAERS Safety Report 5255990-4 (Version None)
Quarter: 2007Q1

REPORT INFORMATION
  Report Type: 
  Country: None (occurrence: None)
  Receive Date: 20070302
  Receipt Date: 20070302
  Transmission Date: 20070707
  Serious: Yes (Life-Threatening, Hospitalization)
  Sender: FDA-Public Use
  Company Number: None

PATIENT
  Age: 20 Year
  Sex: Female
  Weight: 86.1834 kg

DRUGS (1)
  1. DESOGEN [Suspect]
     Indication: CONTRACEPTION
     Dates: start: 20040201, end: 20070227

REACTIONS (1)
  - PULMONARY EMBOLISM [None]
